FAERS Safety Report 24822899 (Version 1)
Quarter: 2025Q1

REPORT INFORMATION
  Report Type: Spontaneous
  Country: PL (occurrence: PL)
  Receive Date: 20250109
  Receipt Date: 20250109
  Transmission Date: 20250409
  Serious: Yes (Hospitalization, Other)
  Sender: AUROBINDO
  Company Number: PL-URPL-1-2314-2019

PATIENT
  Age: 52 Year
  Sex: Female
  Weight: 65 kg

DRUGS (4)
  1. GABAPENTIN [Suspect]
     Active Substance: GABAPENTIN
     Indication: Epilepsy
     Dosage: 3 DOSAGE FORM, ONCE A DAY (1 DOSAGE FORM, TID)
     Route: 048
     Dates: start: 2001
  2. VALPROATE SODIUM [Suspect]
     Active Substance: VALPROATE SODIUM
     Indication: Epilepsy
     Dosage: 4 DOSAGE FORM, ONCE A DAY (2 DOSAGE FORM (2 TABLETS - 0 - 2 TABLETS))
     Route: 048
     Dates: start: 2001
  3. TOPIRAMATE [Concomitant]
     Active Substance: TOPIRAMATE
     Indication: Epilepsy
     Dosage: 4 DOSAGE FORM, ONCE A DAY (2 DOSAGE FORM, BID (2 TABLETS - 0 - 2 TABLETS))
     Route: 048
     Dates: start: 2001
  4. VENLAFAXINE HYDROCHLORIDE [Concomitant]
     Active Substance: VENLAFAXINE HYDROCHLORIDE
     Indication: Epilepsy
     Route: 048
     Dates: start: 2001

REACTIONS (1)
  - Pancreatitis [Recovering/Resolving]
